FAERS Safety Report 5289363-5 (Version None)
Quarter: 2007Q2

REPORT INFORMATION
  Report Type: 
  Country: None (occurrence: None)
  Receive Date: 20070406
  Receipt Date: 20070326
  Transmission Date: 20071010
  Serious: Yes (Hospitalization)
  Sender: FDA-Public Use
  Company Number: PHBS2007JP05547

PATIENT
  Sex: Male

DRUGS (4)
  1. ESTRACYT [Suspect]
     Indication: METASTASES TO BONE
     Route: 042
  2. ETOPOSIDE [Suspect]
     Route: 042
  3. ANTIHYPERTENSIVE DRUGS [Suspect]
     Route: 048
  4. ZOMETA [Suspect]
     Indication: METASTASES TO BONE
     Dosage: 4 MG, UNK
     Route: 042
     Dates: start: 20070201

REACTIONS (1)
  - CARDIAC FAILURE CONGESTIVE [None]
